FAERS Safety Report 5523180-3 (Version None)
Quarter: 2007Q4

REPORT INFORMATION
  Report Type: 
  Country: None (occurrence: None)
  Receive Date: 20071121
  Receipt Date: 20071116
  Transmission Date: 20080405
  Serious: Yes (Life-Threatening, Hospitalization)
  Sender: FDA-Public Use
  Company Number: BE-WYE-G00436807

PATIENT
  Age: 53 Year
  Sex: Male

DRUGS (12)
  1. RAPAMUNE [Suspect]
     Indication: PROPHYLAXIS AGAINST TRANSPLANT REJECTION
     Route: 048
     Dates: start: 20070714, end: 20070819
  2. VANCOMYCIN HCL [Concomitant]
     Dosage: NOT PROVIDED
     Route: 042
  3. CIPROFLOXACIN [Concomitant]
     Route: 048
  4. VALCYTE [Concomitant]
     Route: 048
  5. TRAMADOL HCL [Concomitant]
  6. URSOCHOL [Concomitant]
     Dosage: NOT PROVIDED
     Route: 048
  7. LORAMET [Concomitant]
     Dosage: NOT PROVIDED
     Route: 048
  8. LACTULOSE [Concomitant]
     Route: 048
  9. PARACETAMOL [Concomitant]
     Dosage: NOT PROVIDED
     Route: 042
  10. ASPEGIC 1000 [Concomitant]
  11. MEDROL [Concomitant]
     Route: 048
  12. DIFLUCAN [Concomitant]
     Route: 048

REACTIONS (1)
  - PNEUMONIA [None]
